FAERS Safety Report 8450169-7 (Version None)
Quarter: 2012Q2

REPORT INFORMATION
  Report Type: 
  Country: None (occurrence: None)
  Receive Date: 20120620
  Receipt Date: 20120612
  Transmission Date: 20120825
  Serious: Yes (Hospitalization)
  Sender: FDA-Public Use
  Company Number: US-BAYER-201018978NA

PATIENT
  Age: 49 Year
  Sex: Female
  Weight: 81.818 kg

DRUGS (22)
  1. OMEPRAZOLE [Concomitant]
     Indication: GASTROOESOPHAGEAL REFLUX DISEASE
     Dates: start: 19990101
  2. ORAL CONTRACEPTIVE NOS [Concomitant]
     Dates: start: 19760101, end: 19880101
  3. ANTIOBESITY PREPARATIONS, EXCL DIET PRODUCTS [Concomitant]
     Route: 048
  4. ASCORBIC ACID [Concomitant]
  5. PROPOXYPHENE HCL AND ACETAMINOPHEN [Concomitant]
     Route: 048
  6. PREVACID [Concomitant]
     Dosage: 30 MG, HS
     Route: 048
  7. MAXZIDE [Concomitant]
     Dosage: 37.5/25, QD
     Route: 048
  8. IUD NOS [Concomitant]
     Dates: start: 19800101
  9. DARVOCET [Concomitant]
     Dosage: UNK
     Route: 048
  10. CELEBREX [Concomitant]
     Dosage: 200 MG A DAY, PRN
     Route: 048
  11. MILK OF MAGNESIA TAB [Concomitant]
  12. IBUPROFEN [Concomitant]
  13. PSC COMPAUND DIET PILL [Concomitant]
     Dates: start: 20080201, end: 20080401
  14. ANTIBIOTICS [Concomitant]
  15. LORTAB [Concomitant]
     Dosage: UNK
     Route: 048
  16. YAZ [Suspect]
     Route: 048
     Dates: start: 20080201, end: 20090429
  17. YASMIN [Suspect]
     Dosage: UNK
     Dates: start: 20080128
  18. TRIAM [Concomitant]
     Indication: FLUID RETENTION
  19. TRAMADOL HCL [Concomitant]
     Indication: PAIN
     Dates: start: 19990101
  20. ULTRAM [Concomitant]
     Dosage: 50 MG ONE TO TWO, BID
     Route: 048
  21. LAXATIVES [Concomitant]
  22. TRIAMTERENE AND HYDROCHLOROTHIAZIDE [Concomitant]
     Dosage: 37.5/25, QD

REACTIONS (4)
  - PULMONARY EMBOLISM [None]
  - DEEP VEIN THROMBOSIS [None]
  - THROMBOSIS [None]
  - PAIN [None]
